FAERS Safety Report 9358969 (Version 1)
Quarter: 2013Q2

REPORT INFORMATION
  Report Type: Spontaneous
  Country: FR (occurrence: FR)
  Receive Date: 20130620
  Receipt Date: 20130620
  Transmission Date: 20140414
  Serious: Yes (Hospitalization, Disabling, Other)
  Sender: FDA-Public Use
  Company Number: FR-TEVA-413742ISR

PATIENT
  Age: 72 Year
  Sex: Male

DRUGS (1)
  1. FUROSEMIDE TEVA [Suspect]
     Dosage: 1 DOSAGE FORMS DAILY; ON MORNING, TOOK 10 TABLETS OF SUSPECT BOXES
     Dates: start: 2013

REACTIONS (8)
  - Cerebrovascular accident [Recovered/Resolved]
  - Cardiac disorder [Unknown]
  - Somnolence [Unknown]
  - Fatigue [Unknown]
  - Headache [Unknown]
  - Abnormal sensation in eye [Unknown]
  - Urine output decreased [Unknown]
  - Blood creatinine increased [Unknown]
